FAERS Safety Report 23936408 (Version 1)
Quarter: 2024Q2

REPORT INFORMATION
  Report Type: Report from Study
  Country: US (occurrence: US)
  Receive Date: 20240604
  Receipt Date: 20240604
  Transmission Date: 20240716
  Serious: Yes (Other)
  Sender: FDA-Public Use
  Company Number: US-PFIZER INC-202400174864

PATIENT
  Age: 56 Month
  Sex: Male

DRUGS (1)
  1. METHYLPREDNISOLONE SODIUM SUCCINATE [Suspect]
     Active Substance: METHYLPREDNISOLONE SODIUM SUCCINATE
     Indication: Autism spectrum disorder
     Dosage: UNK
     Route: 042

REACTIONS (2)
  - Autism spectrum disorder [Unknown]
  - Condition aggravated [Unknown]
